FAERS Safety Report 11526553 (Version 1)
Quarter: 2015Q3

REPORT INFORMATION
  Report Type: Spontaneous
  Country: US (occurrence: US)
  Receive Date: 20150903
  Receipt Date: 20150903
  Transmission Date: 20151125
  Serious: No
  Sender: FDA-Public Use
  Company Number: US-ELI_LILLY_AND_COMPANY-US201311007077

PATIENT
  Age: 73 Year
  Sex: Female

DRUGS (2)
  1. CYMBALTA [Suspect]
     Active Substance: DULOXETINE HYDROCHLORIDE
     Indication: BACK PAIN
     Dosage: 30 MG, QD
     Dates: start: 201207
  2. CYMBALTA [Suspect]
     Active Substance: DULOXETINE HYDROCHLORIDE
     Dosage: 30 MG, QD
     Route: 065

REACTIONS (15)
  - Depression [Unknown]
  - Malaise [Unknown]
  - Systemic lupus erythematosus [Unknown]
  - Burning sensation mucosal [Unknown]
  - Hypertrophy of tongue papillae [Unknown]
  - Tongue discolouration [Unknown]
  - Eating disorder [Unknown]
  - Oral mucosal erythema [Unknown]
  - Vulvovaginal mycotic infection [Unknown]
  - Stress [Unknown]
  - Fungal infection [Recovering/Resolving]
  - Oral pain [Unknown]
  - Cough [Unknown]
  - Nasal congestion [Unknown]
  - Dry mouth [Unknown]
